FAERS Safety Report 5017190-2 (Version None)
Quarter: 2006Q2

REPORT INFORMATION
  Report Type: 
  Country: None (occurrence: None)
  Receive Date: 20060602
  Receipt Date: 20060523
  Transmission Date: 20061013
  Serious: Yes (Other)
  Sender: FDA-Public Use
  Company Number: FR-ABBOTT-06P-056-0334019-00

PATIENT
  Sex: Male

DRUGS (6)
  1. RITONAVIR [Suspect]
     Indication: HIV INFECTION
     Route: 065
     Dates: start: 20040101
  2. FLUTICASONE PROPIONATE [Suspect]
     Indication: CHRONIC OBSTRUCTIVE PULMONARY DISEASE
     Route: 055
  3. FOSAMPRENAVIR [Concomitant]
     Indication: HIV INFECTION
     Dates: start: 20040101
  4. ZIDOVUDINE [Concomitant]
     Indication: HIV INFECTION
     Dates: start: 20040101
  5. TENOFOVIR [Concomitant]
     Indication: HIV INFECTION
     Dates: start: 20040101
  6. SALBUTAMOL [Concomitant]
     Indication: CHRONIC OBSTRUCTIVE PULMONARY DISEASE
     Route: 055

REACTIONS (3)
  - CD4 LYMPHOCYTES DECREASED [None]
  - CUSHING'S SYNDROME [None]
  - VIRAL LOAD INCREASED [None]
